FAERS Safety Report 24811924 (Version 1)
Quarter: 2025Q1

REPORT INFORMATION
  Report Type: Spontaneous
  Country: US (occurrence: US)
  Receive Date: 20250106
  Receipt Date: 20250106
  Transmission Date: 20250409
  Serious: No
  Sender: BRAINTREE
  Company Number: US-BRAINTREE LABORATORIES, INC.-2024BTE00695

PATIENT
  Age: 61 Year
  Sex: Female
  Weight: 43.084 kg

DRUGS (2)
  1. SUTAB [Suspect]
     Active Substance: MAGNESIUM SULFATE\POTASSIUM CHLORIDE\SODIUM SULFATE
     Indication: Colonoscopy
     Route: 048
     Dates: start: 20241007, end: 20241008
  2. ZONEGRAN [Concomitant]
     Active Substance: ZONISAMIDE

REACTIONS (3)
  - Tongue coated [Recovered/Resolved]
  - Gastrointestinal wall abnormal [Recovered/Resolved]
  - Wrong technique in product usage process [Recovered/Resolved]

NARRATIVE: CASE EVENT DATE: 20241007
